FAERS Safety Report 23114693 (Version 1)
Quarter: 2023Q4

REPORT INFORMATION
  Report Type: Spontaneous
  Country: DE (occurrence: DE)
  Receive Date: 20231027
  Receipt Date: 20231027
  Transmission Date: 20240109
  Serious: Yes (Congenital Anomaly, Other)
  Sender: FDA-Public Use
  Company Number: None

PATIENT
  Sex: Male

DRUGS (1)
  1. LAMOTRIGINE [Suspect]
     Active Substance: LAMOTRIGINE
     Indication: Product used for unknown indication
     Dosage: MOTHER DOSE: 450 [MG/D ]/ 200-50-200 MG/D, AND COMPLETE PREGNANCY
     Route: 063

REACTIONS (4)
  - Exposure via breast milk [Unknown]
  - Dysphagia [Recovering/Resolving]
  - Foetal exposure during pregnancy [Unknown]
  - Hypotonia neonatal [Recovering/Resolving]
